FAERS Safety Report 4679741-7 (Version None)
Quarter: 2005Q2

REPORT INFORMATION
  Report Type: 
  Country: None (occurrence: None)
  Receive Date: 20050602
  Receipt Date: 20050524
  Transmission Date: 20051028
  Serious: Yes (Other)
  Sender: FDA-Public Use
  Company Number: BR-ROCHE-405694

PATIENT
  Age: 26 Year
  Sex: Female
  Weight: 85 kg

DRUGS (2)
  1. XENICAL [Suspect]
     Indication: UNEVALUABLE EVENT
     Dosage: DOSING REGIMEN VARIABLE, ACCORDING TO THE INGESTION OF FATTY FOODS.
     Route: 048
     Dates: start: 20050215, end: 20050315
  2. GLUCOFORMIN [Concomitant]
     Indication: UNEVALUABLE EVENT
     Route: 065

REACTIONS (1)
  - HAEMATOCHEZIA [None]
